FAERS Safety Report 15296129 (Version 1)
Quarter: 2018Q3

REPORT INFORMATION
  Report Type: Spontaneous
  Country: US (occurrence: US)
  Receive Date: 20180820
  Receipt Date: 20180820
  Transmission Date: 20181010
  Serious: Yes (Hospitalization, Other)
  Sender: FDA-Public Use
  Company Number: US-ARALEZ PHARMACEUTICALS R+D INC.-2018-ARA-002049

PATIENT
  Age: 85 Year
  Sex: Male
  Weight: 72.6 kg

DRUGS (4)
  1. DIETARY SUPPLEMENT [Concomitant]
     Active Substance: DIETARY SUPPLEMENT
  2. DIETARY SUPPLEMENT [Concomitant]
     Active Substance: DIETARY SUPPLEMENT
  3. METOPROLOL SUCCINATE. [Suspect]
     Active Substance: METOPROLOL SUCCINATE
     Indication: HYPERTENSION
     Dosage: 1 DF, QD
     Route: 048
  4. NOCTIVA [Suspect]
     Active Substance: DESMOPRESSIN ACETATE
     Indication: URINARY INCONTINENCE
     Dosage: UNK
     Route: 045
     Dates: start: 20180523, end: 20180525

REACTIONS (4)
  - Eye pain [Recovered/Resolved]
  - Eye irritation [Recovered/Resolved]
  - Blood pressure increased [Unknown]
  - Blood sodium decreased [Recovered/Resolved]

NARRATIVE: CASE EVENT DATE: 20180523
